FAERS Safety Report 21446242 (Version 3)
Quarter: 2023Q4

REPORT INFORMATION
  Report Type: Spontaneous
  Country: US (occurrence: US)
  Receive Date: 20221012
  Receipt Date: 20231118
  Transmission Date: 20240110
  Serious: Yes (Other)
  Sender: FDA-Public Use
  Company Number: US-SA-SAC20221005000786

PATIENT
  Age: 81 Year
  Sex: Female

DRUGS (13)
  1. DUPIXENT [Suspect]
     Active Substance: DUPILUMAB
     Indication: Dermatitis atopic
     Dosage: 300 MG, QOW
     Route: 058
  2. CLOPIDOGREL [Concomitant]
     Active Substance: CLOPIDOGREL BISULFATE
     Route: 048
  3. DULOXETINE HYDROCHLORIDE [Concomitant]
     Active Substance: DULOXETINE HYDROCHLORIDE
  4. INSULIN LISPRO [Concomitant]
     Active Substance: INSULIN LISPRO
  5. JARDIANCE [Concomitant]
     Active Substance: EMPAGLIFLOZIN
     Route: 048
  6. LATANOPROST [Concomitant]
     Active Substance: LATANOPROST
  7. LISINOPRIL H [Concomitant]
     Dosage: 20-12.5M
     Route: 048
  8. NEBIVOLOL [Concomitant]
     Active Substance: NEBIVOLOL
     Route: 048
  9. PANTOPRAZOLE [Concomitant]
     Active Substance: PANTOPRAZOLE
     Route: 048
  10. REPATHA [Concomitant]
     Active Substance: EVOLOCUMAB
  11. TRULICITY [Concomitant]
     Active Substance: DULAGLUTIDE
  12. LASIX [Concomitant]
     Active Substance: FUROSEMIDE
     Dosage: 1 DF, QD
  13. LASIX [Concomitant]
     Active Substance: FUROSEMIDE
     Dosage: 2 DF, QD

REACTIONS (11)
  - Hip fracture [Unknown]
  - Fall [Unknown]
  - Fall [Not Recovered/Not Resolved]
  - Skin haemorrhage [Not Recovered/Not Resolved]
  - Skin swelling [Not Recovered/Not Resolved]
  - COVID-19 [Not Recovered/Not Resolved]
  - Head injury [Unknown]
  - Middle insomnia [Not Recovered/Not Resolved]
  - Pruritus [Recovering/Resolving]
  - Arthralgia [Not Recovered/Not Resolved]
  - Therapeutic product effect incomplete [Unknown]

NARRATIVE: CASE EVENT DATE: 20220801
